FAERS Safety Report 4705091-6 (Version None)
Quarter: 2005Q2

REPORT INFORMATION
  Report Type: 
  Country: None (occurrence: None)
  Receive Date: 20050630
  Receipt Date: 20050630
  Transmission Date: 20051028
  Serious: Yes (Other)
  Sender: FDA-Public Use
  Company Number: None

PATIENT
  Age: 15 Year
  Sex: Male
  Weight: 93.8946 kg

DRUGS (3)
  1. LEXAPRO [Suspect]
     Dosage: PO 5 MG QD
     Route: 048
     Dates: start: 20040901, end: 20040914
  2. RISPERDAL [Concomitant]
  3. TRILEPTAL [Concomitant]

REACTIONS (1)
  - AGGRESSION [None]
